FAERS Safety Report 9920604 (Version 1)
Quarter: 2014Q1

REPORT INFORMATION
  Report Type: Spontaneous
  Country: US (occurrence: US)
  Receive Date: 20140224
  Receipt Date: 20140224
  Transmission Date: 20141002
  Serious: No
  Sender: FDA-Public Use
  Company Number: US-NOVEN-13US008524

PATIENT
  Sex: Female

DRUGS (1)
  1. MINIVELLE [Suspect]
     Indication: HOT FLUSH
     Dosage: 0.0375MG/DAY, TWICE WEEKLY
     Route: 062
     Dates: start: 20131101

REACTIONS (4)
  - Muscle twitching [Recovered/Resolved]
  - Hot flush [Recovered/Resolved]
  - Insomnia [Recovered/Resolved]
  - Application site erythema [Not Recovered/Not Resolved]
